FAERS Safety Report 4729958-8 (Version None)
Quarter: 2005Q3

REPORT INFORMATION
  Report Type: 
  Country: None (occurrence: None)
  Receive Date: 20050728
  Receipt Date: 20050715
  Transmission Date: 20060218
  Serious: Yes (Disabling, Other)
  Sender: FDA-Public Use
  Company Number: 2005-07-0007

PATIENT
  Age: 70 Year
  Sex: Female

DRUGS (7)
  1. QVAR 40 [Suspect]
     Indication: ASTHMA
     Dosage: 100MCG INHALATION
     Dates: start: 20050531, end: 20050618
  2. BISOPROLOL [Concomitant]
  3. ISOSORBIDE MONONITRATE [Concomitant]
  4. CLOPIDOGREL BISULFATE [Concomitant]
  5. PANTORPAZOLE [Concomitant]
  6. TRIMETHOPRIM [Concomitant]
  7. CIPRALEX [Concomitant]

REACTIONS (5)
  - BLISTER [None]
  - DRY SKIN [None]
  - EYELID BLEEDING [None]
  - EYELID DISORDER [None]
  - EYELID PAIN [None]
